FAERS Safety Report 20102854 (Version 1)
Quarter: 2021Q4

REPORT INFORMATION
  Report Type: Spontaneous
  Country: US (occurrence: US)
  Receive Date: 20211123
  Receipt Date: 20211123
  Transmission Date: 20220303
  Serious: Yes (Other)
  Sender: FDA-Public Use
  Company Number: US-AMERICAN REGENT INC-2021003044

PATIENT
  Sex: Male
  Weight: 69 kg

DRUGS (63)
  1. VENOFER [Suspect]
     Active Substance: IRON SUCROSE
     Indication: Product used for unknown indication
     Dosage: 100 MILLIGRAM ON 27MAY2020, 29MAY2020
     Route: 042
     Dates: start: 20200527, end: 20200529
  2. VENOFER [Suspect]
     Active Substance: IRON SUCROSE
     Dosage: 50 MILLIGRAM ON 08JUN2020, 15JUN2020
     Route: 042
     Dates: start: 20200608, end: 20200615
  3. VENOFER [Suspect]
     Active Substance: IRON SUCROSE
     Dosage: 100 MILLIGRAM ON 22JUN2020, 24JUN2020, 29JUN2020
     Route: 042
     Dates: start: 20200622, end: 20200629
  4. VENOFER [Suspect]
     Active Substance: IRON SUCROSE
     Dosage: 100 MILLIGRAM ON 07JUL2020, 10JUL2020, 15JUL2020, 17JUL2020
     Route: 042
     Dates: start: 20200707, end: 20200717
  5. VENOFER [Suspect]
     Active Substance: IRON SUCROSE
     Dosage: 50 MILLIGRAM
     Route: 042
     Dates: start: 20200727, end: 20200727
  6. VENOFER [Suspect]
     Active Substance: IRON SUCROSE
     Dosage: 50 MILLIGRAM ON 03AUG2020, 10AUG2020, 17AUG2020
     Route: 042
     Dates: start: 20200803, end: 20200817
  7. VENOFER [Suspect]
     Active Substance: IRON SUCROSE
     Dosage: 100 MILLIGRAM ON 24AUG2020 (ALSO REPORTED AS 50 MG), 26AUG2020, 28AUG2020, 31AUG2020
     Route: 042
     Dates: start: 20200824, end: 20200831
  8. VENOFER [Suspect]
     Active Substance: IRON SUCROSE
     Dosage: 100 MILLIGRAM ON 02SEP2020, 04SEP2020, 07SEP2020, 09SEP2020, 11SEP2020, 14SEP2020
     Route: 042
     Dates: start: 20200902, end: 20200914
  9. VENOFER [Suspect]
     Active Substance: IRON SUCROSE
     Dosage: 50 MILLIGRAM
     Route: 042
     Dates: start: 20200921, end: 20200921
  10. VENOFER [Suspect]
     Active Substance: IRON SUCROSE
     Dosage: 100 MILLIGRAM ON 23SEP2020, 25SEP2020, 28SEP2020, 30SEP2020
     Route: 042
     Dates: start: 20200923, end: 20200930
  11. VENOFER [Suspect]
     Active Substance: IRON SUCROSE
     Dosage: 100 MILLIGRAM ON 02OCT2020, 05OCT2020, 07OCT2020, 09OCT2020, 12OCT2020, 14OCT2020
     Route: 042
     Dates: start: 20201002, end: 20201014
  12. VENOFER [Suspect]
     Active Substance: IRON SUCROSE
     Dosage: 50 MILLIGRAM ON 19OCT2020, 26OCT2020
     Route: 042
     Dates: start: 20201019, end: 20201026
  13. VENOFER [Suspect]
     Active Substance: IRON SUCROSE
     Dosage: 50 MILLIGRAM ON 18DEC2020, 21DEC2020
     Route: 042
     Dates: start: 20201218, end: 20201221
  14. VENOFER [Suspect]
     Active Substance: IRON SUCROSE
     Dosage: 100 MILLIGRAM ON 23DEC2020, 28DEC2020, 30DEC2020
     Route: 042
     Dates: start: 20201223, end: 20201230
  15. VENOFER [Suspect]
     Active Substance: IRON SUCROSE
     Dosage: 50 MILLIGRAM ON 04JAN2021, 13JAN2021, 18JAN2021, 25JAN2021
     Route: 042
     Dates: start: 20210104, end: 20210125
  16. VENOFER [Suspect]
     Active Substance: IRON SUCROSE
     Dosage: 50 MILLIGRAM ON 03MAY2021, 10MAY2021, 17MAY2021, 20MAY2021, 24MAY2021
     Route: 042
     Dates: start: 20210503, end: 20210524
  17. VENOFER [Suspect]
     Active Substance: IRON SUCROSE
     Dosage: 50 MILLIGRAM ON 07JUN2021, 30JUN2021
     Route: 042
     Dates: start: 20210607, end: 20210630
  18. VENOFER [Suspect]
     Active Substance: IRON SUCROSE
     Dosage: 100 MILLIGRAM ON 01SEP2021, 03SEP2021, 06SEP2021, 08SEP2021, 10SEP2021, 18SEP2021, 20SEP2021, 22SEP2
     Route: 042
     Dates: start: 20210901, end: 20210922
  19. VENOFER [Suspect]
     Active Substance: IRON SUCROSE
     Dosage: 100 MILLIGRAM ON 18OCT2021, 25OCT2021, 27OCT2021, 29OCT2021
     Route: 042
     Dates: start: 20211018, end: 20211029
  20. VENOFER [Suspect]
     Active Substance: IRON SUCROSE
     Dosage: 100 MILLIGRAM ON 01NOV2021, 03NOV2021, 05NOV2021, 08NOV2021
     Route: 042
     Dates: start: 20211101, end: 20211108
  21. MIRCERA [Suspect]
     Active Substance: METHOXY POLYETHYLENE GLYCOL-EPOETIN BETA
     Indication: Product used for unknown indication
     Dosage: 75 MICROGRAM
     Route: 058
     Dates: start: 20200720, end: 20200720
  22. MIRCERA [Suspect]
     Active Substance: METHOXY POLYETHYLENE GLYCOL-EPOETIN BETA
     Dosage: 50 MICROGRAM
     Route: 058
     Dates: start: 20200722, end: 20200722
  23. MIRCERA [Suspect]
     Active Substance: METHOXY POLYETHYLENE GLYCOL-EPOETIN BETA
     Dosage: 50 MICROGRAM
     Route: 058
     Dates: start: 20200812, end: 20200812
  24. MIRCERA [Suspect]
     Active Substance: METHOXY POLYETHYLENE GLYCOL-EPOETIN BETA
     Dosage: 50 MICROGRAM
     Route: 058
     Dates: start: 20200826, end: 20200826
  25. MIRCERA [Suspect]
     Active Substance: METHOXY POLYETHYLENE GLYCOL-EPOETIN BETA
     Dosage: 50 MICROGRAM
     Route: 058
     Dates: start: 20200909, end: 20200909
  26. MIRCERA [Suspect]
     Active Substance: METHOXY POLYETHYLENE GLYCOL-EPOETIN BETA
     Dosage: 50 MICROGRAM
     Route: 058
     Dates: start: 20200923, end: 20200923
  27. MIRCERA [Suspect]
     Active Substance: METHOXY POLYETHYLENE GLYCOL-EPOETIN BETA
     Dosage: 50 MICROGRAM
     Route: 058
     Dates: start: 20201007, end: 20201007
  28. MIRCERA [Suspect]
     Active Substance: METHOXY POLYETHYLENE GLYCOL-EPOETIN BETA
     Dosage: 50 MICROGRAM
     Route: 058
     Dates: start: 20201104, end: 20201104
  29. MIRCERA [Suspect]
     Active Substance: METHOXY POLYETHYLENE GLYCOL-EPOETIN BETA
     Dosage: 75 MICROGRAM
     Route: 058
     Dates: start: 20201202, end: 20201202
  30. MIRCERA [Suspect]
     Active Substance: METHOXY POLYETHYLENE GLYCOL-EPOETIN BETA
     Dosage: 50 MICROGRAM
     Route: 058
     Dates: start: 20201223, end: 20201223
  31. MIRCERA [Suspect]
     Active Substance: METHOXY POLYETHYLENE GLYCOL-EPOETIN BETA
     Dosage: 60 MICROGRAM
     Route: 058
     Dates: start: 20210104, end: 20210104
  32. MIRCERA [Suspect]
     Active Substance: METHOXY POLYETHYLENE GLYCOL-EPOETIN BETA
     Dosage: 75 MICROGRAM
     Route: 058
     Dates: start: 20210125, end: 20210125
  33. MIRCERA [Suspect]
     Active Substance: METHOXY POLYETHYLENE GLYCOL-EPOETIN BETA
     Dosage: 60 MICROGRAM
     Route: 058
     Dates: start: 20210202, end: 20210202
  34. MIRCERA [Suspect]
     Active Substance: METHOXY POLYETHYLENE GLYCOL-EPOETIN BETA
     Dosage: 50 MICROGRAM
     Route: 058
     Dates: start: 20210217, end: 20210217
  35. MIRCERA [Suspect]
     Active Substance: METHOXY POLYETHYLENE GLYCOL-EPOETIN BETA
     Dosage: 50 MICROGRAM
     Route: 058
     Dates: start: 20210303, end: 20210303
  36. MIRCERA [Suspect]
     Active Substance: METHOXY POLYETHYLENE GLYCOL-EPOETIN BETA
     Dosage: 50 MICROGRAM
     Route: 058
     Dates: start: 20210317, end: 20210317
  37. MIRCERA [Suspect]
     Active Substance: METHOXY POLYETHYLENE GLYCOL-EPOETIN BETA
     Dosage: 75 MICROGRAM
     Route: 058
     Dates: start: 20210331, end: 20210331
  38. MIRCERA [Suspect]
     Active Substance: METHOXY POLYETHYLENE GLYCOL-EPOETIN BETA
     Dosage: 100 MICROGRAM
     Route: 058
     Dates: start: 20210414, end: 20210414
  39. MIRCERA [Suspect]
     Active Substance: METHOXY POLYETHYLENE GLYCOL-EPOETIN BETA
     Dosage: 100 MICROGRAM
     Route: 058
     Dates: start: 20210429, end: 20210429
  40. MIRCERA [Suspect]
     Active Substance: METHOXY POLYETHYLENE GLYCOL-EPOETIN BETA
     Dosage: 150 MICROGRAM
     Route: 058
     Dates: start: 20210512, end: 20210512
  41. MIRCERA [Suspect]
     Active Substance: METHOXY POLYETHYLENE GLYCOL-EPOETIN BETA
     Dosage: 100 MICROGRAM
     Route: 058
     Dates: start: 20210526, end: 20210526
  42. MIRCERA [Suspect]
     Active Substance: METHOXY POLYETHYLENE GLYCOL-EPOETIN BETA
     Dosage: 150 MICROGRAM
     Route: 058
     Dates: start: 20210609, end: 20210609
  43. MIRCERA [Suspect]
     Active Substance: METHOXY POLYETHYLENE GLYCOL-EPOETIN BETA
     Dosage: 150 MICROGRAM
     Route: 058
     Dates: start: 20210623, end: 20210623
  44. MIRCERA [Suspect]
     Active Substance: METHOXY POLYETHYLENE GLYCOL-EPOETIN BETA
     Dosage: 150 MICROGRAM
     Route: 058
     Dates: start: 20210707, end: 20210707
  45. MIRCERA [Suspect]
     Active Substance: METHOXY POLYETHYLENE GLYCOL-EPOETIN BETA
     Dosage: 200 MICROGRAM
     Route: 058
     Dates: start: 20210721, end: 20210721
  46. MIRCERA [Suspect]
     Active Substance: METHOXY POLYETHYLENE GLYCOL-EPOETIN BETA
     Dosage: 150 MICROGRAM
     Route: 058
     Dates: start: 20210901, end: 20210901
  47. MIRCERA [Suspect]
     Active Substance: METHOXY POLYETHYLENE GLYCOL-EPOETIN BETA
     Dosage: 150 MICROGRAM
     Route: 058
     Dates: start: 20210915, end: 20210915
  48. MIRCERA [Suspect]
     Active Substance: METHOXY POLYETHYLENE GLYCOL-EPOETIN BETA
     Dosage: 200 MICROGRAM
     Route: 058
     Dates: start: 20210922, end: 20210922
  49. MIRCERA [Suspect]
     Active Substance: METHOXY POLYETHYLENE GLYCOL-EPOETIN BETA
     Dosage: 200 MICROGRAM
     Route: 058
     Dates: start: 20211013, end: 20211013
  50. MIRCERA [Suspect]
     Active Substance: METHOXY POLYETHYLENE GLYCOL-EPOETIN BETA
     Dosage: 200 MICROGRAM
     Route: 058
     Dates: start: 20211027, end: 20211027
  51. CARVEDILOL [Concomitant]
     Active Substance: CARVEDILOL
     Indication: Product used for unknown indication
     Dosage: 1 DOSAGE FORM, 2 IN 1 D
     Route: 048
  52. CLONIDINE HYDROCHLORIDE [Concomitant]
     Active Substance: CLONIDINE HYDROCHLORIDE
     Indication: Product used for unknown indication
     Dosage: 1 DOSAGE FORM (0.1 MILLIGRAM, TAKE AT BEDTIME)
     Route: 048
  53. HUMALOG [Concomitant]
     Active Substance: INSULIN LISPRO
     Indication: Product used for unknown indication
     Dosage: U-100 INSULIN 100 UNIT/ML (100 INTERNATIONAL UNIT, AS DIRECTED)
     Route: 058
  54. HYDRALAZINE [Concomitant]
     Active Substance: HYDRALAZINE HYDROCHLORIDE
     Indication: Product used for unknown indication
     Dosage: 1 DOSAGE FORM, 3 IN 1 D
     Route: 048
  55. IRON [Concomitant]
     Active Substance: IRON
     Indication: Product used for unknown indication
     Dosage: 325 MG (65 MG)(1 DOSAGE FORM, AS DIRECTED)
     Route: 048
  56. LATANOPROST [Concomitant]
     Active Substance: LATANOPROST
     Indication: Product used for unknown indication
     Dosage: 1 DROP INTO BOTH EYES EVERY NIGHT (2 DROPS, EVERY NIGHT)
     Route: 047
  57. LOSARTAN [Concomitant]
     Active Substance: LOSARTAN
     Indication: Product used for unknown indication
     Dosage: 1 DOSAGE FORM, 1 IN 1 D
     Route: 048
  58. NIFEDIPINE [Concomitant]
     Active Substance: NIFEDIPINE
     Indication: Product used for unknown indication
     Dosage: 1 DOSAGE FORM, 2 IN 1 D
     Route: 048
  59. NORCO [Concomitant]
     Active Substance: ACETAMINOPHEN\HYDROCODONE BITARTRATE
     Indication: Product used for unknown indication
     Dosage: 10-325 MG EVERY SIX HOURS (1 DOSAGE FORM, 1 IN 6 HR)
     Route: 048
  60. OMEPRAZOLE [Concomitant]
     Active Substance: OMEPRAZOLE
     Indication: Product used for unknown indication
     Dosage: 1 DOSAGE FORM, 2 IN 1 D
     Route: 048
  61. TORSEMIDE [Concomitant]
     Active Substance: TORSEMIDE
     Indication: Product used for unknown indication
     Dosage: TAKE 1/2 TABLET (50 MG) ON DIALYSIS DAYS AND 100 MG ON NON-DIALYSIS DAYS (2 IN 1 D)
     Route: 048
  62. VITAMIN D2 [Concomitant]
     Active Substance: ERGOCALCIFEROL
     Indication: Product used for unknown indication
     Dosage: 1 DOSAGE FORM, 1 IN 1 WK
     Route: 048
  63. XANAX [Concomitant]
     Active Substance: ALPRAZOLAM
     Indication: Product used for unknown indication
     Dosage: 1 DOSAGE FORM, 2 IN 1 D
     Route: 048

REACTIONS (1)
  - Aplasia pure red cell [Unknown]
